FAERS Safety Report 7532251-1 (Version None)
Quarter: 2011Q2

REPORT INFORMATION
  Report Type: 
  Country: None (occurrence: None)
  Receive Date: 20110607
  Receipt Date: 20110607
  Transmission Date: 20111010
  Serious: Yes (Hospitalization)
  Sender: FDA-Public Use
  Company Number: None

PATIENT
  Age: 75 Year
  Sex: Male

DRUGS (2)
  1. CAPECITABINE [Suspect]
     Dosage: 1000MG DAILY ORAL 14 DA
     Route: 048
     Dates: start: 20110113
  2. VORINOSTAT [Suspect]
     Indication: PANCREATIC CARCINOMA
     Dosage: 100MG DAILY ORAL 21 DAY
     Route: 048
     Dates: start: 20110113

REACTIONS (1)
  - HOSPITALISATION [None]
